FAERS Safety Report 24228568 (Version 1)
Quarter: 2024Q3

REPORT INFORMATION
  Report Type: Spontaneous
  Country: US (occurrence: US)
  Receive Date: 20240820
  Receipt Date: 20240820
  Transmission Date: 20241017
  Serious: No
  Sender: ACCORD
  Company Number: US-Accord-382430

PATIENT
  Age: 64 Year
  Sex: Female

DRUGS (1)
  1. ANASTROZOLE [Suspect]
     Active Substance: ANASTROZOLE
     Indication: Breast cancer stage I
     Dosage: STRENGTH: 1 MG
     Dates: start: 202205, end: 20221204

REACTIONS (1)
  - Arthralgia [Unknown]
